FAERS Safety Report 4471306-5 (Version None)
Quarter: 2004Q3

REPORT INFORMATION
  Report Type: 
  Country: None (occurrence: None)
  Receive Date: 20040909
  Receipt Date: 20040611
  Transmission Date: 20050211
  Serious: Yes (Hospitalization)
  Sender: FDA-Public Use
  Company Number: F01200401363

PATIENT
  Age: 68 Year
  Sex: Male

DRUGS (11)
  1. OXALIPLATIN-SOLUTION 130 MG/M2 [Suspect]
     Indication: COLON CANCER
     Dosage: 264 MG Q3W INTRAVENOUS NOS
     Route: 042
     Dates: start: 20040520, end: 20040520
  2. CAPECITABINE-TABLET-1000MG/M2 [Suspect]
     Dosage: 2003 MG TWICE A DAY PER ORAL FROM D1 TO D15 ORAL
     Route: 048
     Dates: start: 20040520, end: 20040528
  3. DOXAZOSIN MESYLATE [Concomitant]
  4. METOPROLOL SUCCINATE [Concomitant]
  5. SIMVASTATIN [Concomitant]
  6. NICOTINIC ACID [Concomitant]
  7. PAROXETINE HYDROCHLORIDE [Concomitant]
  8. FERROUS SULFATE TAB [Concomitant]
  9. LANSOPRAZOLE [Concomitant]
  10. ROFECOXIB [Concomitant]
  11. SIMVASTATIN [Concomitant]

REACTIONS (2)
  - FEBRILE NEUTROPENIA [None]
  - SMALL INTESTINAL OBSTRUCTION [None]
